FAERS Safety Report 8194614-3 (Version None)
Quarter: 2012Q1

REPORT INFORMATION
  Report Type: 
  Country: None (occurrence: None)
  Receive Date: 20120308
  Receipt Date: 20111010
  Transmission Date: 20120608
  Serious: No
  Sender: FDA-Public Use
  Company Number: US-GLAXOSMITHKLINE-A0948405A

PATIENT
  Age: 27 Year
  Sex: Female

DRUGS (1)
  1. NICORETTE [Suspect]
     Indication: EX-TOBACCO USER
     Dates: start: 20111009, end: 20111010

REACTIONS (3)
  - FOREIGN BODY [None]
  - THIRST [None]
  - DYSPNOEA [None]
